FAERS Safety Report 25819865 (Version 1)
Quarter: 2025Q3

REPORT INFORMATION
  Report Type: Spontaneous
  Country: US (occurrence: US)
  Receive Date: 20250918
  Receipt Date: 20250918
  Transmission Date: 20251020
  Serious: No
  Sender: KVK-TECH
  Company Number: US-KVK-TECH, INC-20250600090

PATIENT

DRUGS (2)
  1. OXYCODONE HYDROCHLORIDE [Suspect]
     Active Substance: OXYCODONE HYDROCHLORIDE
     Indication: Pain
     Route: 065
     Dates: start: 20250526, end: 20250611
  2. OXYCODONE HYDROCHLORIDE [Suspect]
     Active Substance: OXYCODONE HYDROCHLORIDE
     Route: 065
     Dates: start: 202504

REACTIONS (15)
  - Mobility decreased [Unknown]
  - Dyskinesia [Unknown]
  - Dysstasia [Unknown]
  - Pain in extremity [Unknown]
  - Abdominal distension [Unknown]
  - Burning sensation [Unknown]
  - Malaise [Unknown]
  - Abdominal discomfort [Unknown]
  - Gait disturbance [Unknown]
  - Dyspnoea [Unknown]
  - Rash [Unknown]
  - Dizziness [Unknown]
  - Somnolence [Unknown]
  - Pain [Unknown]
  - Product quality issue [Unknown]

NARRATIVE: CASE EVENT DATE: 20250529
